FAERS Safety Report 7463209-9 (Version None)
Quarter: 2011Q2

REPORT INFORMATION
  Report Type: 
  Country: None (occurrence: None)
  Receive Date: 20110506
  Receipt Date: 20110503
  Transmission Date: 20111010
  Serious: Yes (Hospitalization, Disabling, Other)
  Sender: FDA-Public Use
  Company Number: US-PFIZER INC-2011039613

PATIENT
  Sex: Male

DRUGS (1)
  1. CHANTIX [Suspect]
     Indication: SMOKING CESSATION THERAPY
     Dosage: STARTER PACK AND 1MG
     Dates: start: 20090120, end: 20090403

REACTIONS (9)
  - EXCORIATION [None]
  - LACERATION [None]
  - HEAD INJURY [None]
  - CONTUSION [None]
  - LOSS OF CONSCIOUSNESS [None]
  - TRAUMATIC HAEMORRHAGE [None]
  - RIB FRACTURE [None]
  - ROAD TRAFFIC ACCIDENT [None]
  - COGNITIVE DISORDER [None]
